FAERS Safety Report 7447100-X (Version None)
Quarter: 2011Q2

REPORT INFORMATION
  Report Type: 
  Country: None (occurrence: None)
  Receive Date: 20110429
  Receipt Date: 20110418
  Transmission Date: 20111010
  Serious: Yes (Death, Hospitalization, Other)
  Sender: FDA-Public Use
  Company Number: US-ELI_LILLY_AND_COMPANY-US201104002812

PATIENT
  Sex: Female

DRUGS (2)
  1. FORTEO [Suspect]
     Indication: OSTEOPOROSIS
     Dosage: 20 UG, QD
     Dates: start: 20101001, end: 20101101
  2. FORTEO [Suspect]
     Dosage: 20 UG, QD

REACTIONS (3)
  - DEATH [None]
  - OXYGEN CONSUMPTION DECREASED [None]
  - WEIGHT DECREASED [None]
